FAERS Safety Report 9197438 (Version 1)
Quarter: 2013Q1

REPORT INFORMATION
  Report Type: Report from Study
  Country: JP (occurrence: JP)
  Receive Date: 20130328
  Receipt Date: 20130328
  Transmission Date: 20140127
  Serious: Yes (Life-Threatening)
  Sender: FDA-Public Use
  Company Number: JP-GLAXOSMITHKLINE-B0670462A

PATIENT
  Age: 57 Year
  Sex: Female
  Weight: 53 kg

DRUGS (8)
  1. TYKERB [Suspect]
     Indication: BREAST CANCER
     Route: 048
     Dates: start: 20090702, end: 20100218
  2. RINDERON [Suspect]
     Indication: SPINAL CORD OEDEMA
     Route: 048
     Dates: end: 20100218
  3. XELODA [Suspect]
     Route: 048
     Dates: start: 20090702, end: 20091008
  4. XELODA [Suspect]
     Route: 048
     Dates: start: 20091009, end: 20100218
  5. MARZULENE-S [Concomitant]
     Indication: GASTRITIS
     Route: 048
     Dates: end: 20100218
  6. PYDOXAL [Concomitant]
     Indication: NEUROPATHY PERIPHERAL
     Route: 048
     Dates: end: 20100218
  7. TAKEPRON [Concomitant]
     Indication: GASTRITIS
     Route: 048
     Dates: end: 20100218
  8. MAGMITT [Concomitant]
     Indication: CONSTIPATION
     Route: 048
     Dates: end: 20100218

REACTIONS (4)
  - Pulmonary embolism [Recovering/Resolving]
  - Hyperbilirubinaemia [Unknown]
  - Venous thrombosis limb [Recovering/Resolving]
  - Liver function test abnormal [Recovering/Resolving]
